FAERS Safety Report 5644513-3 (Version None)
Quarter: 2008Q1

REPORT INFORMATION
  Report Type: 
  Country: None (occurrence: None)
  Receive Date: 20080229
  Receipt Date: 20070205
  Transmission Date: 20080703
  Serious: No
  Sender: FDA-Public Use
  Company Number: A0638347A

PATIENT
  Age: 54 Year
  Sex: Female

DRUGS (7)
  1. VALTREX [Suspect]
     Indication: GENITAL HERPES
     Dosage: 500MG PER DAY
     Route: 048
  2. HORMONE REPLACEMENT THERAPY [Suspect]
     Indication: HORMONE REPLACEMENT THERAPY
     Dates: start: 20061001
  3. MAXAIR [Concomitant]
  4. SEREVENT [Concomitant]
     Route: 055
  5. SPIRIVA [Concomitant]
  6. AEROBID [Concomitant]
  7. ALLEGRA [Concomitant]

REACTIONS (1)
  - GENITAL HERPES [None]
